FAERS Safety Report 26057719 (Version 1)
Quarter: 2025Q4

REPORT INFORMATION
  Report Type: Spontaneous
  Country: CA (occurrence: CA)
  Receive Date: 20251118
  Receipt Date: 20251118
  Transmission Date: 20260118
  Serious: Yes (Hospitalization, Other)
  Sender: ACCORD
  Company Number: None

PATIENT
  Sex: Male

DRUGS (1)
  1. LACOSAMIDE [Suspect]
     Active Substance: LACOSAMIDE
     Indication: Partial seizures
     Route: 065

REACTIONS (4)
  - Lethargy [Recovering/Resolving]
  - Drug ineffective [Recovering/Resolving]
  - Irritability [Recovering/Resolving]
  - Seizure [Recovering/Resolving]
